FAERS Safety Report 9675088 (Version 2)
Quarter: 2014Q2

REPORT INFORMATION
  Report Type: Spontaneous
  Country: US (occurrence: None)
  Receive Date: 20131105
  Receipt Date: 20140401
  Transmission Date: 20141212
  Serious: Yes (Death, Hospitalization)
  Sender: FDA-Public Use
  Company Number: 2013-US-002608

PATIENT
  Age: 84 Year
  Sex: Male

DRUGS (2)
  1. XYREM (SODIUM OXYBATE) ORAL SOLUTION, 500MG/ML [Suspect]
     Indication: NARCOLEPSY
     Route: 048
     Dates: start: 200209, end: 200411
  2. XYREM (SODIUM OXYBATE) ORAL SOLUTION, 500MG/ML [Suspect]
     Indication: CATAPLEXY
     Route: 048
     Dates: start: 200209, end: 200411

REACTIONS (1)
  - Pneumonia [None]
